FAERS Safety Report 24600084 (Version 4)
Quarter: 2025Q2

REPORT INFORMATION
  Report Type: Spontaneous
  Country: US (occurrence: US)
  Receive Date: 20241110
  Receipt Date: 20250622
  Transmission Date: 20250717
  Serious: No
  Sender: SANOFI AVENTIS
  Company Number: US-SA-2024SA322317

PATIENT
  Age: 54 Year
  Sex: Female
  Weight: 61.68 kg

DRUGS (14)
  1. REZUROCK [Suspect]
     Active Substance: BELUMOSUDIL
     Indication: Acute myeloid leukaemia
     Dosage: 200 MG, QD
     Route: 048
     Dates: start: 202410
  2. REZUROCK [Suspect]
     Active Substance: BELUMOSUDIL
     Dosage: 200 MG, QD
     Route: 048
  3. MAGNESIUM GLYCINATE [Concomitant]
     Active Substance: MAGNESIUM GLYCINATE
     Route: 048
  4. MENAQUINONE 6 [Concomitant]
     Active Substance: MENAQUINONE 6
  5. LISINOPRIL [Concomitant]
     Active Substance: LISINOPRIL
     Route: 048
  6. AMOXICILLIN [Concomitant]
     Active Substance: AMOXICILLIN
  7. ACYCLOVIR [Concomitant]
     Active Substance: ACYCLOVIR
  8. ATIVAN [Concomitant]
     Active Substance: LORAZEPAM
  9. JAKAFI [Concomitant]
     Active Substance: RUXOLITINIB
     Route: 048
  10. URSODIOL [Concomitant]
     Active Substance: URSODIOL
  11. BENADRYL ALLERGY [Concomitant]
     Active Substance: DIPHENHYDRAMINE HYDROCHLORIDE
  12. RECLAST [Concomitant]
     Active Substance: ZOLEDRONIC ACID
     Route: 042
  13. PROCHLORPERAZINE [Concomitant]
     Active Substance: PROCHLORPERAZINE
  14. VITAMIN D3 [Concomitant]
     Active Substance: CHOLECALCIFEROL
     Route: 048

REACTIONS (6)
  - Headache [Recovering/Resolving]
  - Muscle spasms [Unknown]
  - Arthralgia [Unknown]
  - Blood pressure increased [Unknown]
  - Fatigue [Unknown]
  - Drug ineffective for unapproved indication [Unknown]
